FAERS Safety Report 26186371 (Version 1)
Quarter: 2025Q4

REPORT INFORMATION
  Report Type: Spontaneous
  Country: US (occurrence: None)
  Receive Date: 20251219
  Receipt Date: 20251219
  Transmission Date: 20260119
  Serious: Yes (Other)
  Sender: FDA-CTU
  Company Number: None

PATIENT
  Age: 60 Year
  Sex: Male

DRUGS (1)
  1. SIMPONI [Suspect]
     Active Substance: GOLIMUMAB
     Indication: Urticaria
     Dosage: 50 MG EVERY 4 WEEKS SUBCUTANEOUS
     Route: 058

REACTIONS (2)
  - Lung neoplasm malignant [None]
  - Drug ineffective [None]
